FAERS Safety Report 8618328 (Version 3)
Quarter: 2013Q4

REPORT INFORMATION
  Report Type: Spontaneous
  Country: US (occurrence: US)
  Receive Date: 20120615
  Receipt Date: 20131108
  Transmission Date: 20140711
  Serious: Yes (Other)
  Sender: FDA-Public Use
  Company Number: US-009507513-1206USA01148

PATIENT
  Sex: Female
  Weight: 98.88 kg

DRUGS (6)
  1. ZOCOR [Suspect]
     Indication: BLOOD CHOLESTEROL
     Route: 048
     Dates: start: 2010
  2. INVEGA [Suspect]
     Indication: BIPOLAR DISORDER
     Dosage: 6 MG, UNK
     Route: 048
     Dates: start: 2007, end: 201203
  3. INVEGA [Suspect]
     Indication: SCHIZOPHRENIA
     Dosage: 10.5 MG, UNK
     Route: 048
     Dates: start: 201203
  4. NAVANE (THIOTHIXENE) [Concomitant]
  5. LURASIDONE HYDROCHLORIDE [Suspect]
     Indication: SCHIZOPHRENIA
     Dates: start: 201203, end: 201203
  6. NUTRASWEET [Suspect]

REACTIONS (10)
  - Anaphylactic shock [Recovered/Resolved]
  - Weight decreased [Not Recovered/Not Resolved]
  - Blood cholesterol increased [Not Recovered/Not Resolved]
  - Mood swings [Recovered/Resolved]
  - Myalgia [Recovered/Resolved]
  - Product quality issue [Unknown]
  - Hypopituitarism [Not Recovered/Not Resolved]
  - Pain [Recovered/Resolved]
  - Disturbance in attention [Unknown]
  - Hypothalamo-pituitary disorder [Unknown]
